FAERS Safety Report 17117569 (Version 2)
Quarter: 2019Q4

REPORT INFORMATION
  Report Type: Spontaneous
  Country: PL (occurrence: PL)
  Receive Date: 20191205
  Receipt Date: 20191211
  Transmission Date: 20200122
  Serious: Yes (Hospitalization, Other)
  Sender: FDA-Public Use
  Company Number: PL-SHIRE-PL201941800

PATIENT

DRUGS (3)
  1. PREDNISONE. [Suspect]
     Active Substance: PREDNISONE
     Dosage: 10 MILLIGRAM, 1X/DAY:QD
     Route: 065
  2. 476 (MESALAZINE/MESALAMINE) [Suspect]
     Active Substance: MESALAMINE
     Indication: COLITIS ULCERATIVE
     Dosage: 3 GRAM, 1X/DAY:QD
     Route: 065
  3. PREDNISONE. [Suspect]
     Active Substance: PREDNISONE
     Indication: COLITIS ULCERATIVE
     Dosage: 45 MILLIGRAM, 1X/DAY:QD
     Route: 065

REACTIONS (5)
  - Colitis ulcerative [Recovering/Resolving]
  - Cerebral venous sinus thrombosis [Recovered/Resolved]
  - Back pain [Unknown]
  - Arthralgia [Unknown]
  - Anaemia [Unknown]
